FAERS Safety Report 9232142 (Version 2)
Quarter: 2013Q2

REPORT INFORMATION
  Report Type: Spontaneous
  Country: US (occurrence: US)
  Receive Date: 20130415
  Receipt Date: 20130510
  Transmission Date: 20140414
  Serious: No
  Sender: FDA-Public Use
  Company Number: US-PFIZER INC-2013111124

PATIENT
  Sex: 0

DRUGS (1)
  1. SOMAVERT [Suspect]
     Dosage: 20 MG, UNK

REACTIONS (4)
  - Tremor [Unknown]
  - Hyperhidrosis [Unknown]
  - Hypotension [Unknown]
  - Dizziness [Unknown]
